FAERS Safety Report 6119136-2 (Version None)
Quarter: 2009Q1

REPORT INFORMATION
  Report Type: 
  Country: None (occurrence: None)
  Receive Date: 20090311
  Receipt Date: 20090224
  Transmission Date: 20090719
  Serious: Yes (Hospitalization)
  Sender: FDA-Public Use
  Company Number: 2009S1003397

PATIENT
  Age: 68 Year
  Sex: Male

DRUGS (9)
  1. BISOPROLOL (BISOPROLOL) [Suspect]
     Indication: HYPERTENSION
     Dosage: 2.5 MG;DAILY;ORAL
     Route: 048
     Dates: end: 20080328
  2. ROXITHROMYCIN (ROXITHROMYCIN) [Suspect]
     Indication: RESPIRATORY TRACT INFECTION
     Dosage: 300 MG;DAILY;ORAL
     Route: 048
     Dates: start: 20080325, end: 20080328
  3. ALDACTONE [Suspect]
     Indication: HYPERTENSION
     Dosage: 25 MG;DAILY;ORAL
     Route: 048
     Dates: end: 20080328
  4. DISALUNIL (HYDROCHLOROTHIAZIDE) [Suspect]
     Indication: HYPERTENSION
     Dosage: 25 MG;DAILY;ORAL
     Route: 048
  5. ACETYLSALICYLIC ACID [Concomitant]
  6. ALLOPURINOL [Concomitant]
  7. NORVASC [Concomitant]
  8. PANTOZOL [Concomitant]
  9. ZOCOR [Concomitant]

REACTIONS (4)
  - BRADYCARDIA [None]
  - DEHYDRATION [None]
  - DRUG INTERACTION [None]
  - VOMITING [None]
